FAERS Safety Report 10013313 (Version 1)
Quarter: 2014Q1

REPORT INFORMATION
  Report Type: Spontaneous
  Country: US (occurrence: US)
  Receive Date: 20140314
  Receipt Date: 20140314
  Transmission Date: 20141002
  Serious: No
  Sender: FDA-Public Use
  Company Number: US-PFIZER INC-2014073902

PATIENT
  Sex: Female

DRUGS (1)
  1. LYRICA [Suspect]
     Dosage: UNK
     Dates: end: 2014

REACTIONS (3)
  - Drug withdrawal syndrome [Unknown]
  - Nausea [Unknown]
  - Headache [Unknown]
